FAERS Safety Report 13899236 (Version 1)
Quarter: 2017Q3

REPORT INFORMATION
  Report Type: Spontaneous
  Country: US (occurrence: US)
  Receive Date: 20170824
  Receipt Date: 20170824
  Transmission Date: 20171127
  Serious: Yes (Hospitalization)
  Sender: FDA-Public Use
  Company Number: US-PFIZER INC-2017361133

PATIENT
  Age: 48 Year
  Sex: Female

DRUGS (2)
  1. SERTRALINE HCL [Suspect]
     Active Substance: SERTRALINE HYDROCHLORIDE
     Dosage: ^87.5MG^ TABLET
     Route: 048
  2. WELLBUTRIN XL [Suspect]
     Active Substance: BUPROPION HYDROCHLORIDE
     Indication: DEPRESSION
     Dosage: 450MG IN THE MORNING AND 300MG IN AFTERNOON
     Route: 048
     Dates: start: 200608, end: 20120618

REACTIONS (2)
  - Breast cancer metastatic [Recovered/Resolved with Sequelae]
  - Weight increased [Unknown]
